FAERS Safety Report 22592992 (Version 1)
Quarter: 2023Q2

REPORT INFORMATION
  Report Type: Report from Study
  Country: US (occurrence: US)
  Receive Date: 20230613
  Receipt Date: 20230613
  Transmission Date: 20230722
  Serious: Yes (Hospitalization)
  Sender: FDA-Public Use
  Company Number: US-GENMAB-2022-00916

PATIENT
  Age: 70 Year
  Sex: Female
  Weight: 66.2 kg

DRUGS (14)
  1. EPCORITAMAB [Suspect]
     Active Substance: EPCORITAMAB
     Indication: Mantle cell lymphoma stage IV
     Dosage: PRIMING DOSE: 0.16 MILLIGRAM, SINGLE
     Route: 058
     Dates: start: 20211129, end: 20211129
  2. EPCORITAMAB [Suspect]
     Active Substance: EPCORITAMAB
     Dosage: INTERMEDIATE DOSE: 0.8 MILLIGRAM, SINGLE
     Route: 058
     Dates: start: 20211206, end: 20211206
  3. EPCORITAMAB [Suspect]
     Active Substance: EPCORITAMAB
     Dosage: FULL DOSE: 48 MILLIGRAM, WEEKLY
     Route: 058
     Dates: start: 20211213, end: 20220221
  4. EPCORITAMAB [Suspect]
     Active Substance: EPCORITAMAB
     Dosage: FULL DOSE: 48 MILLIGRAM, 1Q2W
     Route: 058
     Dates: start: 20220228, end: 20220627
  5. ZOVIRAX [Concomitant]
     Active Substance: ACYCLOVIR
     Dosage: 400 MILLIGRAM, BID
     Route: 048
     Dates: start: 20200401
  6. LIPITOR [Concomitant]
     Active Substance: ATORVASTATIN CALCIUM
     Dosage: 10 MILLIGRAM, QD
     Route: 048
     Dates: start: 20211012
  7. ZITHROMAX [Concomitant]
     Active Substance: AZITHROMYCIN DIHYDRATE
     Indication: COVID-19
     Dosage: 250 MILLIGRAM, QD
     Route: 048
     Dates: start: 20220725, end: 20220801
  8. TESSALON [Concomitant]
     Active Substance: BENZONATATE
     Indication: COVID-19
     Dosage: 100 MILLIGRAM, TID
     Route: 048
     Dates: start: 20220725, end: 20220801
  9. KEFLEX [Concomitant]
     Active Substance: CEPHALEXIN
     Indication: Urinary tract infection
     Dosage: 500 MILLIGRAM, TID
     Route: 048
     Dates: start: 20220808, end: 20220818
  10. CHERATUSSIN AC [Concomitant]
     Active Substance: CODEINE PHOSPHATE\GUAIFENESIN
     Indication: COVID-19
     Dosage: 10 MILLIGRAM, PRN, 5 ML BY MOUTH EVERY 8 HOURS
     Route: 048
     Dates: start: 20220801
  11. ALLEGRA ALLERGY [Concomitant]
     Active Substance: FEXOFENADINE HYDROCHLORIDE
     Dosage: 180 MILLIGRAM, QD
     Route: 048
     Dates: start: 20160101
  12. SYNTHROID [Concomitant]
     Active Substance: LEVOTHYROXINE SODIUM
     Dosage: 75 MICROGRAM, QD
     Route: 048
     Dates: start: 20201215
  13. MELATONIN [Concomitant]
     Active Substance: MELATONIN
     Dosage: 3 MILLIGRAM, QD
     Route: 048
     Dates: start: 20201118
  14. MOBIC [Concomitant]
     Active Substance: MELOXICAM
     Dosage: 15 MILLIGRAM, QD
     Route: 048
     Dates: start: 20200611

REACTIONS (2)
  - Bronchopulmonary aspergillosis [Recovered/Resolved]
  - COVID-19 pneumonia [Recovered/Resolved]

NARRATIVE: CASE EVENT DATE: 20220812
